FAERS Safety Report 22154055 (Version 1)
Quarter: 2023Q1

REPORT INFORMATION
  Report Type: Spontaneous
  Country: US (occurrence: US)
  Receive Date: 20230330
  Receipt Date: 20230330
  Transmission Date: 20230418
  Serious: Yes (Hospitalization)
  Sender: FDA-Public Use
  Company Number: US-NOVOPROD-1042878

PATIENT

DRUGS (1)
  1. OZEMPIC [Suspect]
     Active Substance: SEMAGLUTIDE
     Indication: Product used for unknown indication
     Route: 058

REACTIONS (6)
  - Cholangitis infective [Unknown]
  - Cholecystitis infective [Unknown]
  - Dehydration [Unknown]
  - Cholelithiasis [Unknown]
  - Vomiting [Unknown]
  - Diarrhoea [Unknown]
